FAERS Safety Report 20700038 (Version 2)
Quarter: 2022Q2

REPORT INFORMATION
  Report Type: Other
  Country: US (occurrence: None)
  Receive Date: 20220412
  Receipt Date: 20220413
  Transmission Date: 20220720
  Serious: No
  Sender: FDA-Public Use
  Company Number: US-ROCHE-3073011

PATIENT
  Age: 64 Year
  Sex: Female

DRUGS (21)
  1. OCREVUS [Suspect]
     Active Substance: OCRELIZUMAB
     Indication: Relapsing-remitting multiple sclerosis
     Dosage: (PRESCRIBED AS 600 MG IV EVERY 6 MONTHS)?DATE OF TREATMENT: 18/FEB/2022
     Route: 065
     Dates: start: 20180205
  2. OCREVUS [Suspect]
     Active Substance: OCRELIZUMAB
     Dosage: 30 MG/ML
     Route: 042
     Dates: start: 20210808
  3. LIORESAL [Concomitant]
     Active Substance: BACLOFEN
  4. VITAMIN D3 [Concomitant]
     Active Substance: CHOLECALCIFEROL
  5. ARICEPT [Concomitant]
     Active Substance: DONEPEZIL HYDROCHLORIDE
  6. PEPCID [Concomitant]
     Active Substance: FAMOTIDINE
  7. NEURONTIN [Concomitant]
     Active Substance: GABAPENTIN
  8. NORCO [Concomitant]
     Active Substance: ACETAMINOPHEN\HYDROCODONE BITARTRATE
  9. ACULAR [Concomitant]
     Active Substance: KETOROLAC TROMETHAMINE
  10. PREVACID [Concomitant]
     Active Substance: LANSOPRAZOLE
  11. KEPPRA [Concomitant]
     Active Substance: LEVETIRACETAM
  12. MOBIC [Concomitant]
     Active Substance: MELOXICAM
  13. RITALIN [Concomitant]
     Active Substance: METHYLPHENIDATE HYDROCHLORIDE
  14. PROVIGIL [Concomitant]
     Active Substance: MODAFINIL
  15. BENICAR [Concomitant]
     Active Substance: OLMESARTAN MEDOXOMIL
  16. ZOFRAN [Concomitant]
     Active Substance: ONDANSETRON HYDROCHLORIDE
  17. KLOR-CON [Concomitant]
     Active Substance: POTASSIUM CHLORIDE
  18. PRAVACHOL [Concomitant]
     Active Substance: PRAVASTATIN SODIUM
  19. RESTASIS [Concomitant]
     Active Substance: CYCLOSPORINE
  20. IMITREX [Concomitant]
     Active Substance: SUMATRIPTAN SUCCINATE
  21. EFFEXOR XR [Concomitant]
     Active Substance: VENLAFAXINE HYDROCHLORIDE

REACTIONS (1)
  - COVID-19 [Recovered/Resolved]

NARRATIVE: CASE EVENT DATE: 20220317
